FAERS Safety Report 12393265 (Version 1)
Quarter: 2016Q2

REPORT INFORMATION
  Report Type: Spontaneous
  Country: US (occurrence: None)
  Receive Date: 20160520
  Receipt Date: 20160520
  Transmission Date: 20160815
  Serious: Yes (Other)
  Sender: FDA-Public Use
  Company Number: None

PATIENT
  Age: 62 Year
  Sex: Female
  Weight: 86.18 kg

DRUGS (24)
  1. SOVALDI [Concomitant]
     Active Substance: SOFOSBUVIR
  2. ZOVIRAX (ACYCLOVIR) [Concomitant]
  3. PRECISE PAIN RELIEVING CREAM [Concomitant]
  4. LORAZEPAM. [Concomitant]
     Active Substance: LORAZEPAM
  5. BENEDRYL TABLETS [Concomitant]
  6. CORTIZONE 10 COOLING RELIEF GEL [Concomitant]
  7. ESTRADIOL. [Concomitant]
     Active Substance: ESTRADIOL
  8. BETAMETHASONE DIPROPIONATE. [Concomitant]
     Active Substance: BETAMETHASONE DIPROPIONATE
  9. AZO BLADDER CONTROL [Concomitant]
  10. DR. SHEFFIELD^S ANTI ITCH CREAM [Concomitant]
  11. HYDROXYZINE [Concomitant]
     Active Substance: HYDROXYZINE\HYDROXYZINE HYDROCHLORIDE
  12. FAMOTIDINE. [Concomitant]
     Active Substance: FAMOTIDINE
  13. CIPROFLOXACIN HCL [Concomitant]
     Active Substance: CIPROFLOXACIN HYDROCHLORIDE
  14. BENEDRYL EXTRA STRENGTH ITCH STOPPING CREAM [Concomitant]
  15. TYLENOL EXTRA STRENGTH [Concomitant]
     Active Substance: ACETAMINOPHEN
  16. BIOFREEZE COLD THERAPY [Concomitant]
  17. RIBAVIRIN, 200 MG [Suspect]
     Active Substance: RIBAVIRIN
     Indication: CHRONIC HEPATITIS C
     Route: 048
     Dates: start: 20160408, end: 20160517
  18. SILVER SULFADIAZINE. [Concomitant]
     Active Substance: SILVER SULFADIAZINE
  19. LIDOCAINE PLUS [Concomitant]
  20. EFFEXOR XR (VENLAFAXINE HCL ER [Concomitant]
  21. VALACYCLOVIR HCL [Concomitant]
     Active Substance: VALACYCLOVIR HYDROCHLORIDE
  22. GABAPENTIN. [Concomitant]
     Active Substance: GABAPENTIN
  23. GOLD BOND EXTRA STRENGTH BODY LOTION [Concomitant]
  24. METHYLPREDNISOLONE. [Concomitant]
     Active Substance: METHYLPREDNISOLONE

REACTIONS (3)
  - Dyspnoea exertional [None]
  - Hypoaesthesia [None]
  - Dizziness [None]

NARRATIVE: CASE EVENT DATE: 20160411
